FAERS Safety Report 5450287-1 (Version None)
Quarter: 2007Q3

REPORT INFORMATION
  Report Type: 
  Country: None (occurrence: None)
  Receive Date: 20070912
  Receipt Date: 20070906
  Transmission Date: 20080115
  Serious: Yes (Hospitalization)
  Sender: FDA-Public Use
  Company Number: US-GENENTECH-229137

PATIENT
  Sex: Female
  Weight: 63.492 kg

DRUGS (15)
  1. LUCENTIS [Suspect]
     Indication: MACULAR DEGENERATION
     Route: 031
     Dates: start: 20060712
  2. AVASTIN [Suspect]
     Indication: MACULAR DEGENERATION
     Route: 031
     Dates: start: 20060510, end: 20060612
  3. XOPENEX [Concomitant]
     Indication: DRUG USE FOR UNKNOWN INDICATION
  4. DIOVAN [Concomitant]
     Indication: DRUG USE FOR UNKNOWN INDICATION
  5. CARDIZEM LA [Concomitant]
     Indication: DRUG USE FOR UNKNOWN INDICATION
  6. ACTONEL [Concomitant]
     Indication: DRUG USE FOR UNKNOWN INDICATION
  7. PLAQUENIL [Concomitant]
     Indication: DRUG USE FOR UNKNOWN INDICATION
  8. SPIRIVA [Concomitant]
     Indication: DRUG USE FOR UNKNOWN INDICATION
  9. XALATAN [Concomitant]
     Indication: DRUG USE FOR UNKNOWN INDICATION
  10. PROTONIX [Concomitant]
     Indication: DRUG USE FOR UNKNOWN INDICATION
  11. SYNTHROID [Concomitant]
     Indication: DRUG USE FOR UNKNOWN INDICATION
  12. ASPIRIN [Concomitant]
     Indication: DRUG USE FOR UNKNOWN INDICATION
  13. LOVENOX [Concomitant]
     Indication: DRUG USE FOR UNKNOWN INDICATION
  14. CALCIUM [Concomitant]
     Indication: DRUG USE FOR UNKNOWN INDICATION
  15. MULTI-VITAMIN [Suspect]

REACTIONS (1)
  - CEREBELLAR INFARCTION [None]
